FAERS Safety Report 7170965-6 (Version None)
Quarter: 2010Q4

REPORT INFORMATION
  Report Type: 
  Country: None (occurrence: None)
  Receive Date: 20101206
  Receipt Date: 20101119
  Transmission Date: 20110411
  Serious: Yes (Other)
  Sender: FDA-Public Use
  Company Number: 001689

PATIENT
  Sex: Male

DRUGS (1)
  1. LACOSAMIDE [Suspect]
     Indication: CONVULSION

REACTIONS (4)
  - DELUSION [None]
  - FEELING ABNORMAL [None]
  - HALLUCINATION [None]
  - PSYCHOTIC DISORDER [None]
